FAERS Safety Report 9580777 (Version 1)
Quarter: 2013Q3

REPORT INFORMATION
  Report Type: Spontaneous
  Country: US (occurrence: None)
  Receive Date: 20130930
  Receipt Date: 20130930
  Transmission Date: 20140515
  Serious: Yes (Other)
  Sender: FDA-Public Use
  Company Number: AUR-APL-2013-07877

PATIENT
  Age: 45 Year
  Sex: Female
  Weight: 79.36 kg

DRUGS (8)
  1. HYDROCHLOROTHIAZIDE (HYDROCHLOROTHIAZIDE) [Suspect]
     Indication: OEDEMA PERIPHERAL
     Dosage: 12.5 MG, 1 IN 1 D, UNKNOWN
     Dates: start: 2013, end: 2013
  2. NEURONTIN (GABAPENTIN) [Suspect]
     Dosage: 2400 MG (1200 MG, 2 IN 1 D), ORAL
     Route: 048
  3. CYMBALTA (DULOXETINE HYDROCHLORIDE) [Suspect]
     Dosage: 60 MG (30 MG, 2 IN 1 D), UNKNOWN
  4. LASIX (FUROSEMIDE) [Suspect]
     Dosage: 40 MG, 1 IN 1 D, UNKNOWN
     Dates: start: 2013, end: 2013
  5. LANTUS (INSULIN GLARGINE) [Concomitant]
  6. SPIRONOLACTONE (SPIRONOLACTONE) [Concomitant]
  7. OXYCONTIN (OXYCONDONE HYDROCHLORIDE) [Concomitant]
  8. MORPHINE [Concomitant]

REACTIONS (4)
  - Joint swelling [None]
  - Neuralgia [None]
  - Local swelling [None]
  - Drug ineffective [None]
